FAERS Safety Report 20777620 (Version 1)
Quarter: 2022Q2

REPORT INFORMATION
  Report Type: Spontaneous
  Country: US (occurrence: None)
  Receive Date: 20220502
  Receipt Date: 20220502
  Transmission Date: 20220721
  Serious: No
  Sender: FDA-Public Use
  Company Number: None

PATIENT
  Age: 26 Year
  Sex: Female
  Weight: 56.7 kg

DRUGS (1)
  1. PRIVIGEN [Suspect]
     Active Substance: HUMAN IMMUNOGLOBULIN G
     Indication: Polymyositis
     Dosage: OTHER FREQUENCY : DAILY X 2 DAYS QMO;?
     Route: 042
     Dates: start: 20190228

REACTIONS (3)
  - Peripheral swelling [None]
  - Thrombosis [None]
  - Infusion related reaction [None]

NARRATIVE: CASE EVENT DATE: 20220430
